FAERS Safety Report 4446109-8 (Version None)
Quarter: 2004Q3

REPORT INFORMATION
  Report Type: 
  Country: None (occurrence: None)
  Receive Date: 20040907
  Receipt Date: 20040827
  Transmission Date: 20050211
  Serious: Yes (Hospitalization)
  Sender: FDA-Public Use
  Company Number: HQWYE652730AUG04

PATIENT
  Age: 76 Year
  Sex: Female
  Weight: 89.89 kg

DRUGS (9)
  1. PROTONIX [Suspect]
     Dosage: 40 MG 1X PER 1 DAY, ORAL
     Route: 048
     Dates: start: 20040101, end: 20040731
  2. PROTONIX [Suspect]
     Dosage: 40 MG 1X PER 1 DAY, ORAL
     Route: 048
     Dates: start: 20040801
  3. DILTIAZEM [Concomitant]
  4. FUROSEMIDE [Concomitant]
  5. POTASSIUM CHLORIDE [Concomitant]
  6. ASPIRIN [Concomitant]
  7. APAP (PARACETAMOL) [Concomitant]
  8. HYDROCODONE (HYDROCODONE) [Concomitant]
  9. MAALOX (ALUMINIUM HYDROXIDE GEL/MAGNESIUM HYDROXIDE) [Concomitant]

REACTIONS (5)
  - ALANINE AMINOTRANSFERASE INCREASED [None]
  - ASPARTATE AMINOTRANSFERASE INCREASED [None]
  - OESOPHAGEAL PAIN [None]
  - VISION BLURRED [None]
  - VISUAL ACUITY REDUCED [None]
